FAERS Safety Report 7958963-3 (Version None)
Quarter: 2011Q4

REPORT INFORMATION
  Report Type: 
  Country: None (occurrence: None)
  Receive Date: 20111130
  Receipt Date: 20111114
  Transmission Date: 20120403
  Serious: Yes (Other)
  Sender: FDA-Public Use
  Company Number: SUNNJ-11-006 (CRC-11-263)

PATIENT
  Age: 52 Year
  Sex: Female

DRUGS (1)
  1. OXYCODONE HCL [Suspect]
     Indication: NECK PAIN
     Dosage: 1.5 TO 2 TABS Q4H; ORAL
     Route: 048
     Dates: start: 20111015, end: 20111017

REACTIONS (6)
  - CHEST PAIN [None]
  - SOMNOLENCE [None]
  - PRODUCT SUBSTITUTION ISSUE [None]
  - HYPERSENSITIVITY [None]
  - PANIC ATTACK [None]
  - FEELING ABNORMAL [None]
